FAERS Safety Report 25084309 (Version 1)
Quarter: 2025Q1

REPORT INFORMATION
  Report Type: Spontaneous
  Country: US (occurrence: US)
  Receive Date: 20250317
  Receipt Date: 20250317
  Transmission Date: 20250409
  Serious: No
  Sender: MYLAN
  Company Number: US-MYLANLABS-2025M1020387

PATIENT
  Age: 42 Year
  Sex: Female

DRUGS (4)
  1. PROCTOFOAM HC [Suspect]
     Active Substance: HYDROCORTISONE ACETATE\PRAMOXINE HYDROCHLORIDE
     Indication: Haemorrhoids
     Dosage: 1 PERCENT, BID (2X PER DAY)
     Dates: start: 20250306
  2. PROCTOFOAM HC [Suspect]
     Active Substance: HYDROCORTISONE ACETATE\PRAMOXINE HYDROCHLORIDE
     Dosage: 1 PERCENT, BID (2X PER DAY)
     Route: 065
     Dates: start: 20250306
  3. PROCTOFOAM HC [Suspect]
     Active Substance: HYDROCORTISONE ACETATE\PRAMOXINE HYDROCHLORIDE
     Dosage: 1 PERCENT, BID (2X PER DAY)
     Route: 065
     Dates: start: 20250306
  4. PROCTOFOAM HC [Suspect]
     Active Substance: HYDROCORTISONE ACETATE\PRAMOXINE HYDROCHLORIDE
     Dosage: 1 PERCENT, BID (2X PER DAY)
     Dates: start: 20250306

REACTIONS (2)
  - Off label use [Unknown]
  - Device issue [Unknown]

NARRATIVE: CASE EVENT DATE: 20250306
